FAERS Safety Report 25084296 (Version 1)
Quarter: 2025Q1

REPORT INFORMATION
  Report Type: Spontaneous
  Country: US (occurrence: US)
  Receive Date: 20250317
  Receipt Date: 20250317
  Transmission Date: 20250409
  Serious: No
  Sender: GRIFOLS
  Company Number: US-IGSA-BIG0033456

PATIENT
  Age: 68 Year
  Sex: Female

DRUGS (2)
  1. XEMBIFY [Suspect]
     Active Substance: HUMAN IMMUNOGLOBULIN G
     Indication: Secondary immunodeficiency
     Dates: start: 20250222, end: 20250222
  2. XEMBIFY [Suspect]
     Active Substance: HUMAN IMMUNOGLOBULIN G
     Dates: start: 20250222, end: 20250222

REACTIONS (2)
  - Infusion site rash [Recovered/Resolved]
  - Dyspnoea [Recovered/Resolved]

NARRATIVE: CASE EVENT DATE: 20250222
